FAERS Safety Report 11528586 (Version 1)
Quarter: 2015Q3

REPORT INFORMATION
  Report Type: Spontaneous
  Country: JP (occurrence: JP)
  Receive Date: 20150921
  Receipt Date: 20150921
  Transmission Date: 20151125
  Serious: Yes (Other)
  Sender: FDA-Public Use
  Company Number: JP-AMGEN-JPNSP2015048484

PATIENT
  Age: 49 Year
  Sex: Female
  Weight: 56 kg

DRUGS (8)
  1. ISONARIF [Concomitant]
     Active Substance: ISONIAZID\RIFAMPIN
     Indication: PROPHYLAXIS
     Dosage: 200 MG, 2X/DAY
     Route: 048
     Dates: start: 20130401, end: 20131224
  2. AZULFIDINE EN-TABS [Concomitant]
     Active Substance: SULFASALAZINE
     Indication: RHEUMATOID ARTHRITIS
     Dosage: 250 MG, 2X/DAY
     Route: 048
     Dates: start: 20101013, end: 20101206
  3. METHOTREXATE [Suspect]
     Active Substance: METHOTREXATE
     Indication: RHEUMATOID ARTHRITIS
     Dosage: 6 MG, WEEKLY
     Route: 048
     Dates: start: 20101207, end: 20110208
  4. METHOTREXATE [Suspect]
     Active Substance: METHOTREXATE
     Dosage: 8 MG, WEEKLY
     Route: 048
     Dates: start: 20110209, end: 20150510
  5. PREDONINE [Concomitant]
     Active Substance: PREDNISOLONE\PREDNISOLONE ACETATE\PREDNISOLONE SODIUM SUCCINATE
     Indication: RHEUMATOID ARTHRITIS
     Dosage: 5 MG, 1X/DAY
     Route: 048
     Dates: start: 20130304, end: 20130320
  6. PRALIA [Concomitant]
     Active Substance: DENOSUMAB
     Indication: RHEUMATOID ARTHRITIS
     Dosage: 60 MG, EVERY 6 MONTHS
     Route: 058
     Dates: start: 20141030
  7. ENBREL [Suspect]
     Active Substance: ETANERCEPT
     Indication: RHEUMATOID ARTHRITIS
     Dosage: 25 MG, 2X/WEEK
     Route: 058
     Dates: start: 20130516, end: 20150510
  8. PREDNISOLONE. [Concomitant]
     Active Substance: PREDNISOLONE
     Indication: RHEUMATOID ARTHRITIS
     Dosage: 3 MG, 1X/DAY
     Route: 048
     Dates: start: 20101013, end: 20110208

REACTIONS (3)
  - Joint swelling [Unknown]
  - Pneumonia bacterial [Recovered/Resolved]
  - Arthralgia [Unknown]

NARRATIVE: CASE EVENT DATE: 20150509
